FAERS Safety Report 11987678 (Version 1)
Quarter: 2016Q1

REPORT INFORMATION
  Report Type: Spontaneous
  Country: US (occurrence: None)
  Receive Date: 20160201
  Receipt Date: 20160201
  Transmission Date: 20160526
  Serious: No
  Sender: FDA-Public Use
  Company Number: None

PATIENT

DRUGS (2)
  1. FOSAMAX [Suspect]
     Active Substance: ALENDRONATE SODIUM
  2. FOSINOPRIL SODIUM. [Suspect]
     Active Substance: FOSINOPRIL SODIUM

REACTIONS (2)
  - Product name confusion [None]
  - Circumstance or information capable of leading to device use error [None]
